FAERS Safety Report 5894445-0 (Version None)
Quarter: 2008Q3

REPORT INFORMATION
  Report Type: 
  Country: None (occurrence: None)
  Receive Date: 20080923
  Receipt Date: 20080923
  Transmission Date: 20090109
  Serious: Yes (Hospitalization)
  Sender: FDA-Public Use
  Company Number: None

PATIENT
  Sex: Male
  Weight: 80.5 kg

DRUGS (2)
  1. CISPLATIN [Suspect]
     Indication: NON-SMALL CELL LUNG CANCER
     Dosage: 75MG/M2 IV
     Route: 042
     Dates: start: 20080814, end: 20080911
  2. PEMETREXED [Suspect]
     Indication: NON-SMALL CELL LUNG CANCER
     Dosage: 500MG/M2 IV
     Route: 042
     Dates: start: 20080814, end: 20080911

REACTIONS (5)
  - DEHYDRATION [None]
  - DYSPHAGIA [None]
  - ODYNOPHAGIA [None]
  - PYREXIA [None]
  - VOMITING [None]
